FAERS Safety Report 6781800-X (Version None)
Quarter: 2010Q2

REPORT INFORMATION
  Report Type: 
  Country: None (occurrence: None)
  Receive Date: 20100621
  Receipt Date: 20100615
  Transmission Date: 20101027
  Serious: Yes (Life-Threatening, Hospitalization, Disabling)
  Sender: FDA-Public Use
  Company Number: US-SHIRE-ALL1-2010-00786

PATIENT

DRUGS (6)
  1. FOSRENOL [Suspect]
     Indication: HYPERPHOSPHATAEMIA
     Dosage: 1000 MG, 3X/DAY:TID
     Route: 048
     Dates: start: 20070215
  2. CRESTOR [Concomitant]
     Indication: DRUG USE FOR UNKNOWN INDICATION
     Dosage: UNK, UNKNOWN
     Route: 065
  3. SENSIPAR [Concomitant]
     Dosage: 120 MG, 1X/DAY:QD
     Route: 048
  4. HYDRALAZINE HCL [Concomitant]
     Dosage: 100 MG, 3X/DAY:TID
     Route: 048
  5. METOPROLOL TARTRATE [Concomitant]
     Dosage: 100 MG, 2X/DAY:BID
     Route: 048
  6. AMLODIPINE [Concomitant]
     Dosage: 10 MG, 1X/DAY:QD
     Route: 048

REACTIONS (4)
  - CARDIAC ARREST [None]
  - FALL [None]
  - GAIT DISTURBANCE [None]
  - TRAUMATIC FRACTURE [None]
